FAERS Safety Report 9423613 (Version 1)
Quarter: 2013Q3

REPORT INFORMATION
  Report Type: Spontaneous
  Country: US (occurrence: US)
  Receive Date: 20130726
  Receipt Date: 20130726
  Transmission Date: 20140515
  Serious: Yes (Hospitalization)
  Sender: FDA-Public Use
  Company Number: US-009507513-1307USA011747

PATIENT
  Age: 17 Year
  Sex: Female

DRUGS (3)
  1. DULERA [Suspect]
     Indication: ASTHMA
     Dosage: 100 MICROGRAM, QD - 2 PUFF TWICE A DAY
     Route: 055
     Dates: start: 201208
  2. DULERA [Suspect]
     Dosage: 200 MICROGRAM, UNK
     Route: 055
     Dates: start: 2011
  3. DULERA [Suspect]
     Dosage: 200 MICROGRAM, UNK
     Route: 055
     Dates: start: 2012

REACTIONS (1)
  - Lung disorder [Recovered/Resolved]
